FAERS Safety Report 20853720 (Version 1)
Quarter: 2022Q2

REPORT INFORMATION
  Report Type: Spontaneous
  Country: US (occurrence: None)
  Receive Date: 20220518
  Receipt Date: 20220518
  Transmission Date: 20220721
  Serious: Yes (Disabling)
  Sender: FDA-Public Use
  Company Number: None

PATIENT
  Age: 69 Year
  Sex: Female
  Weight: 65.25 kg

DRUGS (7)
  1. LOTEMAX SM [Suspect]
     Active Substance: LOTEPREDNOL ETABONATE
     Indication: Post procedural complication
     Dosage: FREQUENCY : 4 TIMES A DAY;?
     Route: 047
     Dates: start: 20220510, end: 20220517
  2. POLYMYXIN B SULFATE [Concomitant]
     Active Substance: POLYMYXIN B SULFATE
  3. Trimethoprim solution [Concomitant]
  4. PROPRANOLOL HYDROCHLORIDE [Concomitant]
     Active Substance: PROPRANOLOL HYDROCHLORIDE
  5. LORAZEPAM [Concomitant]
     Active Substance: LORAZEPAM
  6. ALPRAZOLAM [Concomitant]
     Active Substance: ALPRAZOLAM
  7. CANNABIDIOL [Concomitant]
     Active Substance: CANNABIDIOL

REACTIONS (4)
  - Anxiety [None]
  - Depression [None]
  - Suicidal ideation [None]
  - Post-traumatic stress disorder [None]

NARRATIVE: CASE EVENT DATE: 20220516
